FAERS Safety Report 20721546 (Version 3)
Quarter: 2022Q2

REPORT INFORMATION
  Report Type: Report from Study
  Country: JP (occurrence: JP)
  Receive Date: 20220418
  Receipt Date: 20220603
  Transmission Date: 20220720
  Serious: Yes (Hospitalization)
  Sender: FDA-Public Use
  Company Number: JP-OTSUKA-2022_023323

PATIENT
  Sex: Female
  Weight: 49.1 kg

DRUGS (23)
  1. ARIPIPRAZOLE [Suspect]
     Active Substance: ARIPIPRAZOLE
     Indication: Bipolar I disorder
     Dosage: 400 MG, SINGLE
     Route: 030
     Dates: start: 20211012, end: 20211012
  2. ARIPIPRAZOLE [Suspect]
     Active Substance: ARIPIPRAZOLE
     Dosage: 400 MG, SINGLE
     Route: 030
     Dates: start: 20210817, end: 20210817
  3. ARIPIPRAZOLE [Suspect]
     Active Substance: ARIPIPRAZOLE
     Dosage: 400 MG, SINGLE
     Route: 030
     Dates: start: 20210914, end: 20210914
  4. ARIPIPRAZOLE [Suspect]
     Active Substance: ARIPIPRAZOLE
     Dosage: 400 MG, SINGLE
     Route: 030
     Dates: start: 20211109, end: 20211109
  5. ARIPIPRAZOLE [Suspect]
     Active Substance: ARIPIPRAZOLE
     Dosage: 300 MG, SINGLE
     Route: 030
     Dates: start: 20211207, end: 20211207
  6. ARIPIPRAZOLE [Suspect]
     Active Substance: ARIPIPRAZOLE
     Dosage: 300 MG, SINGLE
     Route: 030
     Dates: start: 20220104, end: 20220104
  7. LITHIUM CARBONATE [Suspect]
     Active Substance: LITHIUM CARBONATE
     Indication: Bipolar I disorder
     Dosage: 400 MG/DAY
     Route: 048
  8. QUETIAPINE FUMARATE [Suspect]
     Active Substance: QUETIAPINE FUMARATE
     Indication: Bipolar I disorder
     Dosage: 50 MG/DAY
     Route: 048
     Dates: start: 20211109, end: 20211110
  9. QUETIAPINE FUMARATE [Suspect]
     Active Substance: QUETIAPINE FUMARATE
     Dosage: 150 MG/DAY
     Route: 048
     Dates: start: 20211111, end: 20211115
  10. QUETIAPINE FUMARATE [Suspect]
     Active Substance: QUETIAPINE FUMARATE
     Dosage: 300 MG/DAY
     Route: 048
     Dates: start: 20211116, end: 20211223
  11. QUETIAPINE FUMARATE [Suspect]
     Active Substance: QUETIAPINE FUMARATE
     Dosage: 150 MG/DAY
     Route: 048
     Dates: start: 20211224, end: 20211226
  12. CARBAMAZEPINE [Concomitant]
     Active Substance: CARBAMAZEPINE
     Indication: Bipolar I disorder
     Dosage: 400 MG/DAY
     Route: 048
     Dates: end: 20211116
  13. NITRAZEPAM [Concomitant]
     Active Substance: NITRAZEPAM
     Indication: Bipolar I disorder
     Dosage: 5 MG/DAY
     Route: 048
  14. QUETIAPINE FUMARATE [Concomitant]
     Active Substance: QUETIAPINE FUMARATE
     Indication: Bipolar I disorder
     Dosage: 50 MG/DAY
     Route: 048
     Dates: start: 20211227, end: 20220104
  15. LATUDA [Concomitant]
     Active Substance: LURASIDONE HYDROCHLORIDE
     Indication: Bipolar I disorder
     Dosage: 20 MG/DAY
     Route: 048
     Dates: start: 20211224, end: 20211226
  16. LATUDA [Concomitant]
     Active Substance: LURASIDONE HYDROCHLORIDE
     Dosage: 40 MG/DAY
     Route: 048
     Dates: start: 20211227, end: 20220110
  17. ARIPIPRAZOLE [Concomitant]
     Active Substance: ARIPIPRAZOLE
     Indication: Bipolar I disorder
     Dosage: 24 MG/DAY
     Route: 048
     Dates: start: 20210630, end: 20210726
  18. ARIPIPRAZOLE [Concomitant]
     Active Substance: ARIPIPRAZOLE
     Dosage: 18 MG/DAY
     Route: 048
     Dates: start: 20210727, end: 20210816
  19. ARIPIPRAZOLE [Concomitant]
     Active Substance: ARIPIPRAZOLE
     Dosage: 6 MG/DAY
     Route: 048
     Dates: start: 20210817, end: 20210830
  20. ATORVASTATIN CALCIUM TRIHYDRATE [Concomitant]
     Active Substance: ATORVASTATIN CALCIUM TRIHYDRATE
     Indication: Product used for unknown indication
     Dosage: 5 MG/DAY
     Route: 048
  21. AMLODIPINE BESYLATE [Concomitant]
     Active Substance: AMLODIPINE BESYLATE
     Indication: Product used for unknown indication
     Dosage: 5 MG/DAY
     Route: 048
  22. ASPIRIN [Concomitant]
     Active Substance: ASPIRIN
     Indication: Product used for unknown indication
     Dosage: 100 MG/DAY
     Route: 048
  23. LANSOPRAZOLE [Concomitant]
     Active Substance: LANSOPRAZOLE
     Indication: Prophylaxis
     Dosage: 15 MG/DAY
     Route: 048

REACTIONS (2)
  - Affective disorder [Unknown]
  - Parkinsonism [Recovering/Resolving]

NARRATIVE: CASE EVENT DATE: 20211213
